FAERS Safety Report 5106852-4 (Version None)
Quarter: 2006Q3

REPORT INFORMATION
  Report Type: 
  Country: None (occurrence: None)
  Receive Date: 20060731
  Receipt Date: 20051025
  Transmission Date: 20061208
  Serious: Yes (Death)
  Sender: FDA-Public Use
  Company Number: US-JNJFOC-20051005722

PATIENT
  Age: 74 Year
  Sex: Male
  Weight: 63.5036 kg

DRUGS (2)
  1. RISPERDAL [Suspect]
     Indication: DEMENTIA ALZHEIMER'S TYPE
     Dosage: 0.5 MG, 3 IN 1 DAY, ORAL
     Route: 048
     Dates: start: 20050501, end: 20050623
  2. ZOLOFT [Concomitant]

REACTIONS (1)
  - CARDIO-RESPIRATORY ARREST [None]
